FAERS Safety Report 15784958 (Version 1)
Quarter: 2019Q1

REPORT INFORMATION
  Report Type: Spontaneous
  Country: US (occurrence: US)
  Receive Date: 20190103
  Receipt Date: 20190103
  Transmission Date: 20190417
  Serious: No
  Sender: FDA-Public Use
  Company Number: US-GRANULES INDIA LIMITED-2060797

PATIENT
  Age: 38 Year
  Sex: Female
  Weight: 55.46 kg

DRUGS (1)
  1. METHOCARBAMOL TABLET, USP 750 MG [Suspect]
     Active Substance: METHOCARBAMOL
     Indication: MUSCLE SPASMS
     Route: 065
     Dates: end: 20181215

REACTIONS (2)
  - Flatulence [Not Recovered/Not Resolved]
  - Diarrhoea [Not Recovered/Not Resolved]
